FAERS Safety Report 23996957 (Version 2)
Quarter: 2024Q2

REPORT INFORMATION
  Report Type: Spontaneous
  Country: US (occurrence: US)
  Receive Date: 20240620
  Receipt Date: 20240624
  Transmission Date: 20240715
  Serious: No
  Sender: FDA-Public Use
  Company Number: US-002147023-NVSC2024US129218

PATIENT

DRUGS (1)
  1. IMATINIB [Suspect]
     Active Substance: IMATINIB
     Indication: Chronic myeloid leukaemia
     Dosage: 400 MG
     Route: 065

REACTIONS (1)
  - Drug ineffective [Unknown]
